FAERS Safety Report 4612083-4 (Version None)
Quarter: 2005Q2

REPORT INFORMATION
  Report Type: 
  Country: None (occurrence: None)
  Receive Date: 20050308
  Receipt Date: 20050124
  Transmission Date: 20051028
  Serious: Yes (Other)
  Sender: FDA-Public Use
  Company Number: 2004UW24404

PATIENT
  Age: 49 Year
  Sex: Female
  Weight: 99.336 kg

DRUGS (11)
  1. CRESTOR [Suspect]
     Indication: DYSLIPIDAEMIA
     Dosage: 10 MG QD PO
     Route: 048
     Dates: start: 20031205, end: 20040723
  2. GEMFIBROZIL [Suspect]
     Indication: DYSLIPIDAEMIA
     Dosage: 600 MG BID PO
     Route: 048
     Dates: end: 20040723
  3. GEMFIBROZIL [Suspect]
     Indication: DYSLIPIDAEMIA
     Dates: start: 20041129
  4. AVANDIA [Concomitant]
  5. TOPROL-XL [Concomitant]
  6. ASPIRIN [Concomitant]
  7. FUROSEMIDE [Concomitant]
  8. NOVOLIN 70/30 [Concomitant]
  9. NEURONTIN [Concomitant]
  10. ACCUPRIL [Concomitant]
  11. PENTOXIFYLLINE [Concomitant]

REACTIONS (4)
  - BLOOD CREATINE PHOSPHOKINASE INCREASED [None]
  - BLOOD CREATININE INCREASED [None]
  - BLOOD UREA INCREASED [None]
  - MYALGIA [None]
